FAERS Safety Report 14713381 (Version 1)
Quarter: 2018Q2

REPORT INFORMATION
  Report Type: Spontaneous
  Country: DK (occurrence: DK)
  Receive Date: 20180404
  Receipt Date: 20180404
  Transmission Date: 20180711
  Serious: Yes (Other)
  Sender: FDA-Public Use
  Company Number: DK-IPCA LABORATORIES LIMITED-IPC-2018-DK-000609

PATIENT

DRUGS (1)
  1. METOPROLOL. [Suspect]
     Active Substance: METOPROLOL
     Indication: AORTIC VALVE STENOSIS
     Dosage: 150 MG, UNK
     Route: 065

REACTIONS (1)
  - Pulmonary congestion [Not Recovered/Not Resolved]
